FAERS Safety Report 8519520-3 (Version None)
Quarter: 2012Q3

REPORT INFORMATION
  Report Type: 
  Country: None (occurrence: None)
  Receive Date: 20120718
  Receipt Date: 20110729
  Transmission Date: 20120928
  Serious: Yes (Hospitalization)
  Sender: FDA-Public Use
  Company Number: GB-WATSON-2011-11934

PATIENT
  Age: 67 Year
  Sex: Female

DRUGS (5)
  1. ERYTHROMYCIN [Suspect]
     Indication: TOOTH INFECTION
     Dosage: 250 MG, UNKNOWN
     Route: 048
     Dates: start: 20100529, end: 20100531
  2. GABAPENTIN [Concomitant]
     Indication: BACK PAIN
     Dosage: UNK
     Route: 048
  3. OXYCONTIN [Concomitant]
     Indication: BACK PAIN
     Dosage: UNK
     Route: 048
  4. ACETAMINOPHEN [Concomitant]
     Indication: BACK PAIN
     Dosage: UNK
     Route: 048
  5. AMITRIPTYLINE HYDROCHLORIDE [Suspect]
     Indication: BACK PAIN
     Dosage: UNK
     Route: 048

REACTIONS (2)
  - DRUG INTERACTION [None]
  - SYNCOPE [None]
